FAERS Safety Report 14301022 (Version 1)
Quarter: 2017Q4

REPORT INFORMATION
  Report Type: Spontaneous
  Country: US (occurrence: US)
  Receive Date: 20171218
  Receipt Date: 20171218
  Transmission Date: 20180321
  Serious: Yes (Other)
  Sender: FDA-Public Use
  Company Number: None

PATIENT
  Age: 57 Year
  Sex: Female

DRUGS (2)
  1. TEMOZOLOMIDE. [Suspect]
     Active Substance: TEMOZOLOMIDE
     Dosage: 150MG DAILY X 5 PO
     Route: 048
     Dates: start: 20171128, end: 20171218
  2. TEMOZOLOMIDE 180MG [Suspect]
     Active Substance: TEMOZOLOMIDE
     Indication: BRAIN NEOPLASM MALIGNANT
     Dosage: 140MG DAILY X 5 PO
     Route: 048
     Dates: start: 20171128, end: 20171218

REACTIONS (3)
  - Dry skin [None]
  - Skin exfoliation [None]
  - Hypotension [None]

NARRATIVE: CASE EVENT DATE: 20171214
